FAERS Safety Report 7908492-8 (Version None)
Quarter: 2011Q4

REPORT INFORMATION
  Report Type: 
  Country: None (occurrence: None)
  Receive Date: 20111111
  Receipt Date: 20111031
  Transmission Date: 20120403
  Serious: Yes (Hospitalization)
  Sender: FDA-Public Use
  Company Number: US-EISAI INC-E7389-01169-CLI-US

PATIENT
  Sex: Female
  Weight: 109 kg

DRUGS (12)
  1. EPIRUBICIN HYDROCHLORIDE [Suspect]
     Route: 041
     Dates: start: 20110215
  2. ATIVAN [Concomitant]
     Indication: NAUSEA
     Route: 048
     Dates: start: 20110207
  3. ONDANSETRON [Concomitant]
     Indication: NAUSEA
     Route: 048
     Dates: start: 20110225
  4. PERCOCET [Concomitant]
     Indication: PAIN
     Dosage: 5MG-325MG
     Route: 048
     Dates: start: 20110207
  5. POTASSIUM MALEATE [Concomitant]
     Route: 048
     Dates: start: 20110211
  6. PROCHLORPERAZINE [Concomitant]
     Indication: NAUSEA
     Route: 048
  7. ZIAC [Concomitant]
     Indication: HYPERTENSION
     Dosage: 6MG-10MG-25MG
     Route: 048
     Dates: start: 20100101
  8. OMEPRAZOLE [Concomitant]
     Route: 048
     Dates: start: 20110207
  9. SIMVASTATIN [Concomitant]
     Route: 048
     Dates: start: 20100101
  10. PLENDIL [Concomitant]
     Indication: HYPERTENSION
     Route: 048
     Dates: start: 20010101
  11. VITAMIN D [Concomitant]
     Route: 048
     Dates: start: 20100601
  12. SEPTRA DS [Concomitant]
     Route: 048
     Dates: start: 20110222

REACTIONS (3)
  - PULMONARY EMBOLISM [None]
  - NEUTROPENIA [None]
  - LEUKOPENIA [None]
